FAERS Safety Report 10721059 (Version 3)
Quarter: 2015Q3

REPORT INFORMATION
  Report Type: Spontaneous
  Country: US (occurrence: US)
  Receive Date: 20150119
  Receipt Date: 20150721
  Transmission Date: 20151125
  Serious: No
  Sender: FDA-Public Use
  Company Number: US-UNITED THERAPEUTICS-UNT-2014-007970

PATIENT
  Age: 78 Year
  Sex: Female
  Weight: 53.52 kg

DRUGS (5)
  1. VENTAVIS [Concomitant]
     Active Substance: ILOPROST
     Indication: PRODUCT USED FOR UNKNOWN INDICATION
  2. ORENITRAM [Suspect]
     Active Substance: TREPROSTINIL
     Indication: PULMONARY HYPERTENSION
     Dosage: 0.25 MG, Q8H
     Route: 048
     Dates: start: 20140911
  3. OPSUMIT [Suspect]
     Active Substance: MACITENTAN
     Indication: PRODUCT USED FOR UNKNOWN INDICATION
     Route: 065
  4. ORENITRAM [Suspect]
     Active Substance: TREPROSTINIL
     Indication: PULMONARY ARTERIAL HYPERTENSION
     Dosage: 2 MG, TID
     Route: 048
     Dates: start: 20140911
  5. ADCIRCA [Concomitant]
     Active Substance: TADALAFIL
     Indication: PRODUCT USED FOR UNKNOWN INDICATION

REACTIONS (17)
  - Insomnia [Recovering/Resolving]
  - Dizziness [Unknown]
  - Back pain [Unknown]
  - Chest discomfort [Unknown]
  - Hypoaesthesia [Unknown]
  - Walking distance test abnormal [Not Recovered/Not Resolved]
  - Dry mouth [Unknown]
  - Dyspepsia [Unknown]
  - Nausea [Recovering/Resolving]
  - Appetite disorder [Unknown]
  - Diarrhoea [Recovering/Resolving]
  - Abnormal dreams [Unknown]
  - Vomiting [Recovering/Resolving]
  - Pruritus [Unknown]
  - Malaise [Unknown]
  - Oedema peripheral [Unknown]
  - Headache [Recovering/Resolving]

NARRATIVE: CASE EVENT DATE: 2014
